FAERS Safety Report 7487641-2 (Version None)
Quarter: 2011Q2

REPORT INFORMATION
  Report Type: 
  Country: None (occurrence: None)
  Receive Date: 20110518
  Receipt Date: 20091226
  Transmission Date: 20111010
  Serious: Yes (Death, Hospitalization, Other)
  Sender: FDA-Public Use
  Company Number: US-BAYER-200943560NA

PATIENT
  Age: 67 Year
  Sex: Male
  Weight: 87 kg

DRUGS (18)
  1. LANTUS [Concomitant]
     Dosage: 8 UNITS EVERY EVENING.
     Route: 058
     Dates: start: 20000101, end: 20040101
  2. CALCIUM CHLORIDE [Concomitant]
     Dosage: 200 MG
     Route: 042
     Dates: start: 20030403, end: 20030403
  3. NITROGLYCERIN [Concomitant]
     Dosage: 2 OR 12 ML/HOUR.
     Route: 042
     Dates: start: 20030403, end: 20030403
  4. INSULIN [Concomitant]
     Dosage: 2 ML/HOUR
     Route: 042
     Dates: start: 20030403, end: 20030403
  5. SODIUM BICARBONATE [Concomitant]
     Dosage: 50 MEQ
     Route: 042
     Dates: start: 20030403, end: 20030403
  6. RED BLOOD CELLS [Concomitant]
     Dosage: 400 UNK, UNK
     Dates: start: 20030403
  7. PROTAMINE SULFATE [Concomitant]
     Dosage: 400 MG, UNK
     Dates: start: 20030403, end: 20030403
  8. PLAVIX [Concomitant]
     Dosage: 75 MG, QD
     Route: 048
  9. INDERAL [Concomitant]
     Dosage: 250 MG
     Dates: start: 20030403, end: 20030403
  10. HEPARIN [Concomitant]
     Dosage: 35,000 UNITS.
     Dates: start: 20030403, end: 20030403
  11. TRASYLOL [Suspect]
     Indication: CORONARY ARTERY BYPASS
     Dosage: 200 ML OVER 30 MINUTES, THEN 50ML/HOUR LOADING DOSE.
     Route: 042
     Dates: start: 20030403
  12. CALCIUM CHLORIDE [Concomitant]
     Dosage: 1 G, UNK
     Dates: start: 20030403, end: 20030403
  13. GLIPIZIDE [Concomitant]
     Dosage: 20 MG, BID
     Route: 048
     Dates: start: 19840101, end: 20040101
  14. GLUCOPHAGE [Concomitant]
     Dosage: 1000 MG EVERY MORNING AND 1500 MG EVERY EVENING.
     Route: 048
  15. HYZAAR [Concomitant]
     Dosage: 100/25 MG TWICE A DAY.
     Route: 048
  16. INTERFERON [Concomitant]
     Dosage: UNK
     Dates: start: 19930101, end: 20020101
  17. ACETYLSALICYLIC ACID SRT [Concomitant]
     Dosage: 81 MG, QD
     Route: 048
  18. CALCIUM CHLORIDE [Concomitant]
     Dosage: 300 MG, UNK
     Dates: start: 20030403, end: 20030403

REACTIONS (9)
  - UNEVALUABLE EVENT [None]
  - RENAL INJURY [None]
  - PAIN [None]
  - RENAL FAILURE [None]
  - INJURY [None]
  - RENAL FAILURE ACUTE [None]
  - LIVER DISORDER [None]
  - DIABETES MELLITUS [None]
  - DEATH [None]
